FAERS Safety Report 16437967 (Version 1)
Quarter: 2019Q2

REPORT INFORMATION
  Report Type: Spontaneous
  Country: US (occurrence: US)
  Receive Date: 20190617
  Receipt Date: 20190617
  Transmission Date: 20190711
  Serious: No
  Sender: FDA-Public Use
  Company Number: US-AUROBINDO-AUR-APL-2018-062312

PATIENT

DRUGS (1)
  1. QUINAPRIL TABLETS USP 40 MG [Suspect]
     Active Substance: QUINAPRIL
     Indication: BLOOD PRESSURE MEASUREMENT
     Dosage: 1 TABLET PER DAY
     Route: 065

REACTIONS (1)
  - Diarrhoea [Recovered/Resolved]
